FAERS Safety Report 11419832 (Version 1)
Quarter: 2015Q3

REPORT INFORMATION
  Report Type: Spontaneous
  Country: US (occurrence: None)
  Receive Date: 20150825
  Receipt Date: 20150825
  Transmission Date: 20151125
  Serious: Yes (Other)
  Sender: FDA-Public Use
  Company Number: None

PATIENT
  Age: 70 Year
  Sex: Female
  Weight: 48.54 kg

DRUGS (10)
  1. VITAMIN D2 [Concomitant]
     Active Substance: ERGOCALCIFEROL
  2. HYDROCODONE-APAP [Concomitant]
     Active Substance: ACETAMINOPHEN\HYDROCODONE
  3. TIZANIDINE. [Concomitant]
     Active Substance: TIZANIDINE
  4. DIAZEPAM. [Concomitant]
     Active Substance: DIAZEPAM
  5. NUMBUMETONE [Concomitant]
  6. MIRTAZAPINE. [Concomitant]
     Active Substance: MIRTAZAPINE
  7. TEMAZEPAM. [Concomitant]
     Active Substance: TEMAZEPAM
  8. CALCIUM [Concomitant]
     Active Substance: CALCIUM
  9. PROLIA [Concomitant]
     Active Substance: DENOSUMAB
  10. PROLIA [Suspect]
     Active Substance: DENOSUMAB
     Indication: BONE DISORDER
     Route: 042

REACTIONS (2)
  - Blood immunoglobulin A decreased [None]
  - Coeliac disease [None]

NARRATIVE: CASE EVENT DATE: 20150422
